FAERS Safety Report 24976847 (Version 3)
Quarter: 2025Q1

REPORT INFORMATION
  Report Type: Spontaneous
  Country: PL (occurrence: PL)
  Receive Date: 20250217
  Receipt Date: 20250331
  Transmission Date: 20250409
  Serious: Yes (Other)
  Sender: PHARMAESSENTIA
  Company Number: PL-PHARMAESSENTIA CORPORATION-PL-2025-PEC-006004

PATIENT
  Age: 35 Year
  Sex: Male

DRUGS (1)
  1. BESREMI [Suspect]
     Active Substance: ROPEGINTERFERON ALFA-2B-NJFT
     Indication: Polycythaemia vera
     Route: 058

REACTIONS (2)
  - Erectile dysfunction [Recovered/Resolved]
  - Premature ejaculation [Recovered/Resolved]
